FAERS Safety Report 14890721 (Version 4)
Quarter: 2018Q3

REPORT INFORMATION
  Report Type: Spontaneous
  Country: US (occurrence: US)
  Receive Date: 20180514
  Receipt Date: 20180906
  Transmission Date: 20181010
  Serious: Yes (Other)
  Sender: FDA-Public Use
  Company Number: US-AMGEN-USASP2018063231

PATIENT
  Age: 60 Year
  Sex: Male

DRUGS (2)
  1. ENBREL [Suspect]
     Active Substance: ETANERCEPT
     Indication: RHEUMATOID ARTHRITIS
     Dosage: 50 MG, EVERY 5 DAYS
     Route: 065
     Dates: start: 200604
  2. ENBREL [Suspect]
     Active Substance: ETANERCEPT
     Dosage: 50 MG, QWK
     Route: 058

REACTIONS (9)
  - Wrong technique in product usage process [Unknown]
  - Injection site pain [Unknown]
  - Drug effect incomplete [Unknown]
  - Pain [Not Recovered/Not Resolved]
  - Unevaluable event [Unknown]
  - Rheumatoid arthritis [Not Recovered/Not Resolved]
  - Herpes zoster [Unknown]
  - Off label use [Unknown]
  - Herpes zoster oticus [Unknown]

NARRATIVE: CASE EVENT DATE: 201610
